FAERS Safety Report 5839398-6 (Version None)
Quarter: 2008Q3

REPORT INFORMATION
  Report Type: 
  Country: None (occurrence: None)
  Receive Date: 20080806
  Receipt Date: 20080723
  Transmission Date: 20090109
  Serious: Yes (Hospitalization)
  Sender: FDA-Public Use
  Company Number: 2008JP003284

PATIENT
  Age: 54 Year
  Sex: Male
  Weight: 71 kg

DRUGS (3)
  1. PROGRAF [Suspect]
     Indication: RHEUMATOID ARTHRITIS
     Dosage: 1 MG, UID/QD, ORAL
     Route: 048
     Dates: start: 20080304
  2. PREDNONINE (PREDNISOLONE SODIUM SUCCINATE) TABLET [Suspect]
     Indication: RHEUMATOID ARTHRITIS
     Dosage: 2.5 MG, UID/QD, ORAL
     Route: 048
     Dates: start: 20080304
  3. OMEPRAL (OMEPRAZOLE SODIUM) TABLET [Suspect]
     Indication: REFLUX OESOPHAGITIS
     Dosage: 10 MG, UID/QD, ORAL
     Route: 048
     Dates: start: 20080304

REACTIONS (1)
  - NEPHROTIC SYNDROME [None]
